FAERS Safety Report 8230066-2 (Version None)
Quarter: 2012Q1

REPORT INFORMATION
  Report Type: 
  Country: None (occurrence: None)
  Receive Date: 20120323
  Receipt Date: 20120321
  Transmission Date: 20120608
  Serious: No
  Sender: FDA-Public Use
  Company Number: US-PFIZER INC-2012074091

PATIENT
  Sex: Male
  Weight: 109 kg

DRUGS (10)
  1. LIPITOR [Concomitant]
     Indication: CARDIAC DISORDER
     Dosage: 800 MG, DAILY
  2. METOPROLOL [Concomitant]
     Indication: BLOOD PRESSURE ABNORMAL
     Dosage: 12.5 MG, 2X/DAY
  3. PANTOPRAZOLE [Concomitant]
     Indication: GASTRIC DISORDER
     Dosage: 40 MG, DAILY
  4. GLIMEPIRIDE [Concomitant]
     Indication: TYPE 2 DIABETES MELLITUS
     Dosage: 2 MG, DAILY
  5. CHANTIX [Suspect]
     Indication: SMOKING CESSATION THERAPY
     Dosage: 0.5 MG, DAILY
     Route: 048
     Dates: start: 20110501, end: 20110101
  6. LISINOPRIL [Concomitant]
     Indication: BLOOD PRESSURE ABNORMAL
     Dosage: 5 MG, DAILY
  7. ACETYLSALICYLIC ACID [Concomitant]
     Indication: ANTICOAGULANT THERAPY
     Dosage: 325 MG, DAILY
  8. VITAMIN B-12 [Concomitant]
     Dosage: 1000 IU, 2X/DAY
  9. METFORMIN [Concomitant]
     Indication: TYPE 2 DIABETES MELLITUS
     Dosage: 500 MG, 2X/DAY
  10. SYNTHROID [Concomitant]
     Indication: THYROID DISORDER
     Dosage: 50 MG, DAILY

REACTIONS (1)
  - DRUG INEFFECTIVE [None]
